FAERS Safety Report 6274080-5 (Version None)
Quarter: 2009Q3

REPORT INFORMATION
  Report Type: 
  Country: None (occurrence: None)
  Receive Date: 20090720
  Receipt Date: 20090706
  Transmission Date: 20100115
  Serious: Yes (Hospitalization)
  Sender: FDA-Public Use
  Company Number: PHHY2009US28895

PATIENT
  Age: 32 Year
  Sex: Male

DRUGS (6)
  1. BENAZEPRIL HYDROCHLORIDE [Suspect]
  2. VERAPAMIL [Suspect]
  3. BUPROPION [Suspect]
  4. ZOLPIDEM [Suspect]
  5. QUETIAPINE FUMARATE [Suspect]
  6. CLONAZEPAM [Suspect]

REACTIONS (12)
  - BLOOD CREATININE INCREASED [None]
  - BLOOD LACTIC ACID INCREASED [None]
  - BLOOD PRESSURE DECREASED [None]
  - CREPITATIONS [None]
  - DEPRESSED LEVEL OF CONSCIOUSNESS [None]
  - DRY SKIN [None]
  - GASTROINTESTINAL SOUNDS ABNORMAL [None]
  - INCOHERENT [None]
  - INTENTIONAL OVERDOSE [None]
  - MYDRIASIS [None]
  - NODAL ARRHYTHMIA [None]
  - SHOCK [None]
